FAERS Safety Report 7557279-7 (Version None)
Quarter: 2011Q2

REPORT INFORMATION
  Report Type: 
  Country: None (occurrence: None)
  Receive Date: 20110620
  Receipt Date: 20080320
  Transmission Date: 20111010
  Serious: Yes (Hospitalization)
  Sender: FDA-Public Use
  Company Number: PHHY2008AT03530

PATIENT
  Sex: Female

DRUGS (6)
  1. AREDIA [Suspect]
     Indication: METASTASES TO BONE
     Dosage: 90 MG, UNK
     Route: 042
  2. LASIX [Concomitant]
     Indication: PLEURAL EFFUSION
     Dosage: 40 MG, UNK
  3. ZOMETA [Suspect]
     Indication: METASTASES TO BONE
     Dosage: 4 MG, UNK
  4. FEMARA [Suspect]
     Indication: BREAST CANCER
     Dates: start: 20021212
  5. LEVOFLOXACIN [Concomitant]
     Indication: PNEUMONIA
     Dosage: 2 DF, UNK
     Route: 048
  6. HYDAL [Concomitant]
     Dosage: 8 MG, UNK

REACTIONS (1)
  - MALIGNANT PLEURAL EFFUSION [None]
